FAERS Safety Report 10370268 (Version 1)
Quarter: 2014Q1

REPORT INFORMATION
  Report Type: Spontaneous
  Country: US (occurrence: None)
  Receive Date: 20140306
  Receipt Date: 20140306
  Transmission Date: 20141002
  Serious: Yes (Other)
  Sender: FDA-Public Use
  Company Number: 163-21880-13071844

PATIENT
  Age: 70 Year
  Sex: Female

DRUGS (4)
  1. REVLIMID [Suspect]
     Indication: PLASMA CELL MYELOMA
     Route: 048
     Dates: start: 201007
  2. WARFARIN SODIUM [Concomitant]
  3. PENICILLIN VK (PHENOXYMETHYLPENICILLIN POTASSIUM) [Concomitant]
  4. PREDNISONE [Concomitant]

REACTIONS (1)
  - Thrombosis [None]
